FAERS Safety Report 15617255 (Version 1)
Quarter: 2018Q4

REPORT INFORMATION
  Report Type: Report from Study
  Country: ES (occurrence: ES)
  Receive Date: 20181114
  Receipt Date: 20181114
  Transmission Date: 20190205
  Serious: Yes (Hospitalization, Other)
  Sender: FDA-Public Use
  Company Number: ES-PFIZER INC-2018263512

PATIENT
  Age: 56 Year
  Weight: 77 kg

DRUGS (7)
  1. ONDANSETRON [Concomitant]
     Active Substance: ONDANSETRON
     Indication: PROPHYLAXIS
     Dosage: UNK
     Dates: start: 20170213, end: 20170508
  2. DEXAMETHASONE. [Concomitant]
     Active Substance: DEXAMETHASONE
     Indication: PROPHYLAXIS
     Dosage: 40 MG, WEEKLY
     Route: 042
     Dates: start: 20170213, end: 20170508
  3. PACLITAXEL. [Suspect]
     Active Substance: PACLITAXEL
     Indication: BREAST CANCER METASTATIC
     Dosage: 1 UNK, WEEKLY
     Route: 042
     Dates: start: 20170213, end: 20170508
  4. DEXCHLORPHENIRAMINE [Concomitant]
     Active Substance: DEXCHLORPHENIRAMINE
     Indication: PROPHYLAXIS
     Dosage: 2 DF, WEEKLY (1 AMPULE)
     Route: 042
     Dates: start: 20170213, end: 20170508
  5. BEVACIZUMAB. [Suspect]
     Active Substance: BEVACIZUMAB
     Indication: BREAST CANCER METASTATIC
     Dosage: 1 UNK, UNK (EVERY 2 WEEKS)
     Route: 042
     Dates: start: 20170213, end: 20170425
  6. RANITIDINE. [Concomitant]
     Active Substance: RANITIDINE
     Indication: PROPHYLAXIS
     Dosage: 2 DF, WEEKLY (1 AMPULE)
     Route: 042
     Dates: start: 20170213
  7. SIMVASTATIN. [Concomitant]
     Active Substance: SIMVASTATIN
     Indication: DYSLIPIDAEMIA
     Dosage: 20 MG, 1X/DAY
     Route: 048

REACTIONS (6)
  - Fatigue [Unknown]
  - Cardiac failure congestive [Recovered/Resolved]
  - Erythema [Recovered/Resolved]
  - Embolism [Recovering/Resolving]
  - Haemoptysis [Recovered/Resolved]
  - Mouth haemorrhage [Recovered/Resolved]

NARRATIVE: CASE EVENT DATE: 20170310
